FAERS Safety Report 6536025-X (Version None)
Quarter: 2010Q1

REPORT INFORMATION
  Report Type: 
  Country: None (occurrence: None)
  Receive Date: 20100113
  Receipt Date: 20100108
  Transmission Date: 20100710
  Serious: Yes (Hospitalization, Other)
  Sender: FDA-Public Use
  Company Number: GB-ABBOTT-09P-167-0501273-00

PATIENT
  Age: 9 Year
  Sex: Male

DRUGS (8)
  1. VALPROATE SODIUM [Suspect]
     Indication: CONVULSION PROPHYLAXIS
  2. VALPROATE SODIUM [Suspect]
  3. CLOBAZAM [Interacting]
     Indication: CONVULSION PROPHYLAXIS
     Dosage: NOT REPORTED
  4. LAMOTRIGINE [Interacting]
     Indication: CONVULSION PROPHYLAXIS
  5. LAMOTRIGINE [Interacting]
  6. ETHOSUXIMIDE [Interacting]
     Indication: CONVULSION PROPHYLAXIS
  7. LEVETIRACETAM [Concomitant]
     Indication: DRUG USE FOR UNKNOWN INDICATION
  8. PREDNISOLONE [Concomitant]
     Indication: DRUG USE FOR UNKNOWN INDICATION

REACTIONS (4)
  - BLISTER [None]
  - DRUG INTERACTION [None]
  - NECROSIS [None]
  - SWEAT GLAND DISORDER [None]
